FAERS Safety Report 7582167-X (Version None)
Quarter: 2011Q2

REPORT INFORMATION
  Report Type: 
  Country: None (occurrence: None)
  Receive Date: 20110630
  Receipt Date: 20110620
  Transmission Date: 20111010
  Serious: No
  Sender: FDA-Public Use
  Company Number: US-BIOGENIDEC-2011BI022929

PATIENT
  Age: 42 Year
  Sex: Female

DRUGS (4)
  1. AVONEX [Suspect]
     Route: 030
     Dates: start: 20090924, end: 20100926
  2. AVONEX [Suspect]
     Indication: MULTIPLE SCLEROSIS
     Route: 030
     Dates: start: 20110506
  3. AVONEX [Suspect]
     Route: 030
     Dates: start: 20070713, end: 20071018
  4. AVONEX [Suspect]
     Route: 030
     Dates: start: 20081120

REACTIONS (2)
  - PAIN IN EXTREMITY [None]
  - CONTUSION [None]
